FAERS Safety Report 5842716-6 (Version None)
Quarter: 2008Q3

REPORT INFORMATION
  Report Type: 
  Country: None (occurrence: None)
  Receive Date: 20080808
  Receipt Date: 20080729
  Transmission Date: 20090109
  Serious: Yes (Hospitalization)
  Sender: FDA-Public Use
  Company Number: 2008AL008279

PATIENT
  Age: 69 Year
  Sex: Male

DRUGS (1)
  1. DIGOXIN [Suspect]
     Indication: CARDIAC DISORDER
     Dosage: 0.25MG DAILY PO
     Route: 048

REACTIONS (4)
  - ASTHENIA [None]
  - CORONARY ARTERIAL STENT INSERTION [None]
  - FATIGUE [None]
  - FEELING ABNORMAL [None]
